FAERS Safety Report 12759236 (Version 1)
Quarter: 2016Q3

REPORT INFORMATION
  Report Type: Spontaneous
  Country: US (occurrence: US)
  Receive Date: 20160915
  Receipt Date: 20160915
  Transmission Date: 20161109
  Serious: No
  Sender: FDA-Public Use
  Company Number: None

PATIENT
  Age: 66 Year
  Sex: Female

DRUGS (1)
  1. ESOMEPRAZOLE 40 MG MYLAN [Suspect]
     Active Substance: ESOMEPRAZOLE
     Indication: GASTROOESOPHAGEAL REFLUX DISEASE
     Route: 048
     Dates: start: 20160601, end: 20160830

REACTIONS (10)
  - Musculoskeletal pain [None]
  - Blood pressure increased [None]
  - Mucosal inflammation [None]
  - Decreased appetite [None]
  - Toothache [None]
  - Throat irritation [None]
  - Stomatitis [None]
  - Oesophageal pain [None]
  - Abdominal pain upper [None]
  - Gingival pain [None]

NARRATIVE: CASE EVENT DATE: 20160601
